FAERS Safety Report 9133486 (Version 1)
Quarter: 2013Q1

REPORT INFORMATION
  Report Type: Spontaneous
  Country: US (occurrence: US)
  Receive Date: 20130124
  Receipt Date: 20130124
  Transmission Date: 20140127
  Serious: Yes (Hospitalization)
  Sender: FDA-Public Use
  Company Number: US-BRACCO-008712

PATIENT
  Age: 58 Year
  Sex: Female
  Weight: 104 kg

DRUGS (3)
  1. MULTIHANCE [Suspect]
     Indication: NUCLEAR MAGNETIC RESONANCE IMAGING
     Route: 042
     Dates: start: 20121008, end: 20121008
  2. MULTIHANCE [Suspect]
     Indication: BACK PAIN
     Route: 042
     Dates: start: 20121008, end: 20121008
  3. NITROGLYCERINE [Concomitant]

REACTIONS (1)
  - Anaphylactic reaction [Recovered/Resolved]
